FAERS Safety Report 25534509 (Version 1)
Quarter: 2025Q3

REPORT INFORMATION
  Report Type: Report from Study
  Country: GB (occurrence: GB)
  Receive Date: 20250709
  Receipt Date: 20250709
  Transmission Date: 20251020
  Serious: Yes (Other)
  Sender: SANDOZ
  Company Number: GB-SANDOZ-SDZ2025GB047634

PATIENT
  Sex: Male

DRUGS (1)
  1. ERELZI [Suspect]
     Active Substance: ETANERCEPT-SZZS
     Indication: Psoriatic arthropathy
     Dosage: 50 MG, QW (STREGTH: ERELZI 50MG/1ML SOLUTION FOR INJECTION PRE-FILLED PENS (SANDOZ LTD) 4 PRE-FILLED
     Route: 058

REACTIONS (1)
  - Psoriatic arthropathy [Unknown]
